FAERS Safety Report 26216661 (Version 2)
Quarter: 2025Q4

REPORT INFORMATION
  Report Type: Spontaneous
  Country: US (occurrence: US)
  Receive Date: 20251231
  Receipt Date: 20251231
  Transmission Date: 20260117
  Serious: No
  Sender: LEO PHARM
  Company Number: US-LEO Pharma-385339

PATIENT
  Age: 25 Year
  Sex: Male

DRUGS (2)
  1. ANZUPGO [Suspect]
     Active Substance: DELGOCITINIB
     Indication: Dermatitis atopic
     Dosage: APPLY A THIN LAYER
     Dates: start: 202510
  2. ADBRY [Suspect]
     Active Substance: TRALOKINUMAB-LDRM
     Indication: Dermatitis atopic
     Route: 058
     Dates: start: 202510

REACTIONS (2)
  - Dermatitis atopic [Not Recovered/Not Resolved]
  - Product use in unapproved indication [Unknown]
